FAERS Safety Report 25895786 (Version 1)
Quarter: 2025Q4

REPORT INFORMATION
  Report Type: Spontaneous
  Country: AU (occurrence: AU)
  Receive Date: 20251008
  Receipt Date: 20251008
  Transmission Date: 20260118
  Serious: Yes (Other)
  Sender: CSL BEHRING
  Company Number: AU-BEH-2025219967

PATIENT
  Age: 4 Year
  Sex: Female
  Weight: 15.4 kg

DRUGS (4)
  1. HUMAN IMMUNOGLOBULIN G [Suspect]
     Active Substance: HUMAN IMMUNOGLOBULIN G
     Indication: Kawasaki^s disease
     Dosage: 30 G, SINGLE
     Route: 042
     Dates: start: 20250906, end: 20250907
  2. ASPIRIN [Concomitant]
     Active Substance: ASPIRIN
     Indication: Kawasaki^s disease
     Dosage: 75 MG
     Route: 048
     Dates: start: 20250905, end: 20250908
  3. CEFTRIAXONE [Concomitant]
     Active Substance: CEFTRIAXONE
     Indication: Kawasaki^s disease
     Dosage: 770 MG
     Route: 042
     Dates: start: 20250905, end: 20250907
  4. ACETAMINOPHEN [Concomitant]
     Active Substance: ACETAMINOPHEN
     Indication: Pain
     Dosage: 230 MG
     Route: 048
     Dates: start: 20250905, end: 20250908

REACTIONS (7)
  - Hypothermia [Unknown]
  - Infusion related reaction [Recovered/Resolved]
  - Hypotension [Unknown]
  - Body temperature increased [Recovered/Resolved]
  - Heart rate increased [Unknown]
  - Rash [Unknown]
  - Tachycardia [Recovered/Resolved]

NARRATIVE: CASE EVENT DATE: 20250906
